FAERS Safety Report 6891904-9 (Version None)
Quarter: 2010Q3

REPORT INFORMATION
  Report Type: 
  Country: None (occurrence: None)
  Receive Date: 20100731
  Receipt Date: 20071031
  Transmission Date: 20110219
  Serious: Yes (Other)
  Sender: FDA-Public Use
  Company Number: US-PFIZER INC-2007092288

PATIENT
  Sex: Female

DRUGS (8)
  1. NEURONTIN [Suspect]
     Indication: NEUROPATHY PERIPHERAL
  2. GABAPENTIN [Suspect]
     Indication: NEUROPATHY PERIPHERAL
  3. ZESTRIL [Concomitant]
  4. VITAMIN D [Concomitant]
  5. VITAMIN B-12 [Concomitant]
  6. DICYCLOMINE [Concomitant]
  7. CLONAZEPAM [Concomitant]
  8. LOMOTIL [Concomitant]

REACTIONS (3)
  - DRUG INEFFECTIVE [None]
  - ULCER [None]
  - WEIGHT INCREASED [None]
